FAERS Safety Report 9971421 (Version 1)
Quarter: 2014Q1

REPORT INFORMATION
  Report Type: Report from Study
  Country: US (occurrence: US)
  Receive Date: 20140306
  Receipt Date: 20140306
  Transmission Date: 20141002
  Serious: Yes (Hospitalization)
  Sender: FDA-Public Use
  Company Number: US-ABBVIE-13P-163-1150811-00

PATIENT
  Age: 26 Year
  Sex: Female

DRUGS (5)
  1. HUMIRA [Suspect]
     Indication: CROHN^S DISEASE
     Dates: start: 20130826, end: 20130826
  2. HUMIRA [Suspect]
     Dates: start: 20130909
  3. PROTONIX [Concomitant]
     Indication: PRODUCT USED FOR UNKNOWN INDICATION
     Dosage: PILL
  4. AXID [Concomitant]
     Indication: PRODUCT USED FOR UNKNOWN INDICATION
     Dosage: PILL
  5. ZOFRAN [Concomitant]
     Indication: PRODUCT USED FOR UNKNOWN INDICATION
     Dosage: PILL

REACTIONS (3)
  - Headache [Not Recovered/Not Resolved]
  - Pyrexia [Recovered/Resolved]
  - Rash erythematous [Not Recovered/Not Resolved]
